FAERS Safety Report 14260343 (Version 2)
Quarter: 2017Q4

REPORT INFORMATION
  Report Type: Spontaneous
  Country: GR (occurrence: GR)
  Receive Date: 20171207
  Receipt Date: 20171229
  Transmission Date: 20180321
  Serious: No
  Sender: FDA-Public Use
  Company Number: GR-PFIZER INC-2017523051

PATIENT
  Age: 48 Year
  Sex: Female

DRUGS (2)
  1. DOXORUBICIN [Concomitant]
     Active Substance: DOXORUBICIN
     Indication: CHONDROSARCOMA
     Dosage: UNK (SECOND COURSE - DOSE RECEIVED WAS 670 MG/M2)
  2. CISPLATIN. [Suspect]
     Active Substance: CISPLATIN
     Indication: CHONDROSARCOMA
     Dosage: UNK
     Route: 065

REACTIONS (2)
  - Product use in unapproved indication [Unknown]
  - Drug intolerance [Unknown]
